FAERS Safety Report 19463125 (Version 1)
Quarter: 2021Q2

REPORT INFORMATION
  Report Type: Other
  Country: SG (occurrence: SG)
  Receive Date: 20210625
  Receipt Date: 20210625
  Transmission Date: 20210717
  Serious: Yes (Other)
  Sender: FDA-Public Use
  Company Number: SG-B.BRAUN MEDICAL INC.-2113128

PATIENT
  Age: 34 Year
  Sex: Female

DRUGS (6)
  1. FENTANYL. [Suspect]
     Active Substance: FENTANYL
     Route: 037
  2. OXYTOCIN. [Concomitant]
     Active Substance: OXYTOCIN
  3. MORPHINE [Suspect]
     Active Substance: MORPHINE
     Route: 037
  4. EPHEDRINE. [Concomitant]
     Active Substance: EPHEDRINE
  5. PHENYLEPHRINE [Concomitant]
     Active Substance: PHENYLEPHRINE HYDROCHLORIDE
  6. BUPIVACAINE HYDROCHLORIDE WITH DEXTROSE [Suspect]
     Active Substance: BUPIVACAINE HYDROCHLORIDE
     Indication: CAESAREAN SECTION
     Route: 037

REACTIONS (3)
  - Pituitary apoplexy [None]
  - Diabetes insipidus [None]
  - Subarachnoid haemorrhage [None]
